FAERS Safety Report 20985670 (Version 3)
Quarter: 2024Q1

REPORT INFORMATION
  Report Type: Other
  Country: BE (occurrence: BE)
  Receive Date: 20220621
  Receipt Date: 20240229
  Transmission Date: 20240409
  Serious: Yes (Death, Hospitalization, Other)
  Sender: FDA-Public Use
  Company Number: BE-CELGENE-BEL-20190602006

PATIENT

DRUGS (11)
  1. DEXAMETHASONE [Suspect]
     Active Substance: DEXAMETHASONE
     Indication: Plasma cell myeloma
     Dosage: 10 MG, 1 DOSE WEEKLY
     Route: 048
     Dates: start: 20190206, end: 20190212
  2. DEXAMETHASONE [Suspect]
     Active Substance: DEXAMETHASONE
     Dosage: 10 MG, 1 DOSE WEEKLY
     Route: 048
     Dates: start: 20190116, end: 20190205
  3. DEXAMETHASONE [Suspect]
     Active Substance: DEXAMETHASONE
     Dosage: 10 MG, 1 DOSE WEEKLY
     Route: 048
     Dates: start: 20190306, end: 20190404
  4. DEXAMETHASONE [Suspect]
     Active Substance: DEXAMETHASONE
     Indication: Plasma cell myeloma
     Dosage: 10 MG, 1 DOSE WEEKLY
     Route: 048
     Dates: start: 20190206, end: 20190212
  5. DEXAMETHASONE [Suspect]
     Active Substance: DEXAMETHASONE
     Dosage: 10 MG, 1 DOSE WEEKLY
     Route: 048
     Dates: start: 20190116, end: 20190205
  6. DEXAMETHASONE [Suspect]
     Active Substance: DEXAMETHASONE
     Dosage: 10 MG, 1 DOSE WEEKLY
     Route: 048
     Dates: start: 20190306, end: 20190404
  7. REVLIMID [Suspect]
     Active Substance: LENALIDOMIDE
     Indication: Plasma cell myeloma
     Dosage: 15 MILLIGRAM
     Route: 048
     Dates: start: 20190116, end: 20190205
  8. REVLIMID [Suspect]
     Active Substance: LENALIDOMIDE
     Dosage: 10 MILLIGRAM, 21/28 DAYS
     Route: 048
     Dates: start: 20190206, end: 20190226
  9. REVLIMID [Suspect]
     Active Substance: LENALIDOMIDE
     Dosage: 10 MILLIGRAM
     Route: 048
     Dates: start: 20190405, end: 20190418
  10. REVLIMID [Suspect]
     Active Substance: LENALIDOMIDE
     Dosage: 10 MILLIGRAM
     Route: 048
     Dates: start: 20190306, end: 20190327
  11. AMIODARONE [Concomitant]
     Active Substance: AMIODARONE
     Indication: Product used for unknown indication
     Dosage: FREQUENCY TEXT: NOT PROVIDEDDURATION TEXT : UNKNOWN
     Route: 065

REACTIONS (4)
  - Plasma cell myeloma [Fatal]
  - Hyperthyroidism [Recovering/Resolving]
  - Malaise [Recovered/Resolved]
  - Hypertension [Recovered/Resolved]

NARRATIVE: CASE EVENT DATE: 20190430
